FAERS Safety Report 8444892-8 (Version None)
Quarter: 2012Q2

REPORT INFORMATION
  Report Type: 
  Country: None (occurrence: None)
  Receive Date: 20120323
  Receipt Date: 20110908
  Transmission Date: 20120825
  Serious: Yes (Hospitalization)
  Sender: FDA-Public Use
  Company Number: 163-21880-11082142

PATIENT
  Age: 79 Year
  Sex: Male
  Weight: 99.7913 kg

DRUGS (19)
  1. COZAAR [Concomitant]
  2. LASIX [Concomitant]
  3. FISH OIL (FISH OIL) (UNKNOWN) [Concomitant]
  4. LORTAB (VICODIN) (UNKNOWN) [Concomitant]
  5. AMBIEN [Concomitant]
  6. ASPIRIN [Concomitant]
  7. NIASPAN (NICOTINIC ACID) (UNKNOWN) [Concomitant]
  8. CALCIUM +VIT D (CALCIUM D3 ^STADA^) (UNKNOWN) [Concomitant]
  9. FOSAMAX (ALENDRONATE SODIUM) (UNKNOWN) [Concomitant]
  10. NEXIUM [Concomitant]
  11. K-PHOS (POTASSIUM PHOSPHATE MONOBASIC) (UNKNOWN) [Concomitant]
  12. TIAZAC (DILTIAZEM HYDROCHLORIDE) (UNKNOWN) [Concomitant]
  13. COUMADIN [Concomitant]
  14. VITAMIN C (ASCORBIC ACID) (UNKNOWN) [Concomitant]
  15. VITAMIN B COMPLEX (B-KOMPLEX ^LECIVA^) (UNKNOWN) [Concomitant]
  16. COREG (CARVEDILOL) (UNKNOWN) [Concomitant]
  17. REVLIMID [Suspect]
     Indication: MULTIPLE MYELOMA
     Dosage: 25 MG, DAYS 1-21 OF 28, PO
     Route: 048
     Dates: start: 20110727, end: 20110810
  18. NASONEX (MOMETASONE FUROATE) (UNKNOWN) [Concomitant]
  19. DECADRON [Concomitant]

REACTIONS (1)
  - SKIN INFECTION [None]
